FAERS Safety Report 8235458-3 (Version None)
Quarter: 2012Q1

REPORT INFORMATION
  Report Type: 
  Country: None (occurrence: None)
  Receive Date: 20120322
  Receipt Date: 20120311
  Transmission Date: 20120608
  Serious: Yes (Hospitalization)
  Sender: FDA-Public Use
  Company Number: GGEL20120300352

PATIENT
  Age: 70 Year
  Sex: Female

DRUGS (1)
  1. LITHIUM CARBONATE [Suspect]
     Indication: BIPOLAR DISORDER

REACTIONS (2)
  - HYPERCALCAEMIA [None]
  - DEPRESSED LEVEL OF CONSCIOUSNESS [None]
